FAERS Safety Report 9260748 (Version 1)
Quarter: 2013Q2

REPORT INFORMATION
  Report Type: Spontaneous
  Country: US (occurrence: US)
  Receive Date: 20130429
  Receipt Date: 20130429
  Transmission Date: 20140414
  Serious: No
  Sender: FDA-Public Use
  Company Number: US-PFIZER INC-2013132311

PATIENT
  Age: 54 Year
  Sex: Female
  Weight: 80.27 kg

DRUGS (10)
  1. LYRICA [Suspect]
     Indication: PAIN IN EXTREMITY
     Dosage: 100 MG, 3X/DAY
     Dates: start: 20120516
  2. LYRICA [Suspect]
     Indication: NEUROPATHY PERIPHERAL
     Dosage: 150 MG AT BEDTIME AND 25 MG IN MORNING
  3. LYRICA [Suspect]
     Indication: FIBROMYALGIA
  4. LYRICA [Suspect]
     Indication: RESTLESS LEGS SYNDROME
  5. ESTRACE [Concomitant]
     Indication: MENOPAUSE
     Dosage: 1 MG, 2X/DAY
  6. CYMBALTA [Concomitant]
     Dosage: 60 MG, 1X/DAY
  7. LEVOTHYROXINE [Concomitant]
     Indication: HYPOTHYROIDISM
     Dosage: 88 UG, 1X/DAY
  8. MIRAPEX [Concomitant]
     Indication: RESTLESS LEGS SYNDROME
     Dosage: 0.125 MG, 1X/DAY
  9. CLONAZEPAM [Concomitant]
     Dosage: 1 MG, 2X/DAY
  10. BUPROPION HYDROCHLORIDE [Concomitant]
     Dosage: 150 MG, 2X/DAY

REACTIONS (8)
  - Headache [Unknown]
  - Drug intolerance [Unknown]
  - Weight increased [Unknown]
  - Face oedema [Not Recovered/Not Resolved]
  - Eye oedema [Not Recovered/Not Resolved]
  - Oedema [Unknown]
  - Drug ineffective [Unknown]
  - Off label use [Unknown]
